FAERS Safety Report 21708733 (Version 4)
Quarter: 2023Q2

REPORT INFORMATION
  Report Type: Report from Study
  Country: US (occurrence: US)
  Receive Date: 20221210
  Receipt Date: 20230512
  Transmission Date: 20230721
  Serious: Yes (Other)
  Sender: FDA-Public Use
  Company Number: US-002147023-NVSC2022US284990

PATIENT
  Age: 60 Year
  Sex: Male

DRUGS (1)
  1. ENTRESTO [Suspect]
     Active Substance: SACUBITRIL\VALSARTAN
     Indication: Product used for unknown indication
     Dosage: 1 DOSAGE FORM, BID (24/26 MG)
     Route: 065
     Dates: start: 202110

REACTIONS (8)
  - Cerebrovascular accident [Recovering/Resolving]
  - Bradycardia [Unknown]
  - Cardiac dysfunction [Unknown]
  - Rhinorrhoea [Unknown]
  - Throat clearing [Unknown]
  - Sinus disorder [Unknown]
  - Oedema [Recovered/Resolved]
  - Speech disorder [Recovering/Resolving]

NARRATIVE: CASE EVENT DATE: 20211201
